FAERS Safety Report 6816161-0 (Version None)
Quarter: 2010Q3

REPORT INFORMATION
  Report Type: 
  Country: None (occurrence: None)
  Receive Date: 20100702
  Receipt Date: 20100702
  Transmission Date: 20110219
  Serious: Yes (Other)
  Sender: FDA-Public Use
  Company Number: None

PATIENT
  Sex: Female
  Weight: 63.05 kg

DRUGS (5)
  1. TOVIAZ [Suspect]
     Indication: POLLAKIURIA
     Dates: start: 20100602
  2. TOVIAZ [Suspect]
     Indication: POLLAKIURIA
     Dates: start: 20100603
  3. TOVIAZ [Suspect]
     Indication: POLLAKIURIA
     Dates: start: 20100604
  4. TOVIAZ [Suspect]
     Indication: POLLAKIURIA
     Dates: start: 20100605
  5. TOVIAZ [Suspect]
     Indication: POLLAKIURIA
     Dates: start: 20100606

REACTIONS (7)
  - ASTHENIA [None]
  - DRUG INEFFECTIVE [None]
  - DYSURIA [None]
  - FEELING ABNORMAL [None]
  - MOBILITY DECREASED [None]
  - PAIN [None]
  - SPEECH DISORDER [None]
